FAERS Safety Report 8796811 (Version 3)
Quarter: 2013Q4

REPORT INFORMATION
  Report Type: Report from Study
  Country: JP (occurrence: JP)
  Receive Date: 20120919
  Receipt Date: 20131030
  Transmission Date: 20140711
  Serious: Yes (Other)
  Sender: FDA-Public Use
  Company Number: JP-VERTEX PHARMACEUTICAL INC.-AE-2012-010995

PATIENT
  Age: 62 Year
  Sex: Female

DRUGS (15)
  1. VX-950 (TELAPREVIR) [Suspect]
     Indication: CHRONIC HEPATITIS C
     Dosage: 2250 MG, QD
     Route: 048
     Dates: start: 20120521
  2. VX-950 (TELAPREVIR) [Suspect]
     Dosage: 750 MG, QD
     Route: 048
     Dates: start: 20120611, end: 20120625
  3. VX-950 (TELAPREVIR) [Suspect]
     Dosage: 750 MG, QD
     Route: 048
     Dates: start: 20130703, end: 20130723
  4. VX-950 (TELAPREVIR) [Suspect]
     Dosage: 1500 MG, QD
     Route: 048
     Dates: start: 20120724, end: 20120813
  5. PEGINTRON [Suspect]
     Indication: CHRONIC HEPATITIS C
     Dosage: 1.5 ?G/KG, QW
     Route: 058
     Dates: start: 20120521, end: 20120604
  6. PEGINTRON [Suspect]
     Dosage: 0.7 ?G/KG, QW
     Route: 058
     Dates: start: 20120611
  7. PEGINTRON [Suspect]
     Dosage: 1.0 ?G/KG, UNK
     Route: 058
  8. PEGINTRON [Suspect]
     Dosage: 0.8 ?G/KG, QW
     Route: 058
     Dates: end: 20120924
  9. PEGINTRON [Suspect]
     Dosage: 1.5 ?G/KG, UNK
     Route: 058
     Dates: start: 20121001, end: 20121029
  10. REBETOL [Suspect]
     Indication: CHRONIC HEPATITIS C
     Dosage: 600 MG, QD
     Route: 048
     Dates: start: 20120521
  11. REBETOL [Suspect]
     Dosage: 200 MG, QD
     Route: 048
     Dates: start: 20120611, end: 20120625
  12. REBETOL [Suspect]
     Dosage: 200 MG, QD
     Route: 048
     Dates: start: 20120702, end: 20120820
  13. REBETOL [Suspect]
     Dosage: 400 MG, QD
     Route: 048
     Dates: start: 20120820, end: 20120923
  14. REBETOL [Suspect]
     Dosage: 600 MG, QD
     Route: 048
     Dates: start: 20120924, end: 20131029
  15. DIOVAN [Concomitant]
     Dosage: 40 MG, QD
     Route: 048
     Dates: end: 20120611

REACTIONS (5)
  - Renal impairment [Recovered/Resolved]
  - White blood cell count decreased [Recovered/Resolved]
  - Hyperuricaemia [Recovered/Resolved]
  - Anaemia [Recovered/Resolved]
  - Haemoglobin decreased [Recovered/Resolved]
